FAERS Safety Report 5096423-0 (Version None)
Quarter: 2006Q3

REPORT INFORMATION
  Report Type: 
  Country: None (occurrence: None)
  Receive Date: 20060905
  Receipt Date: 20060831
  Transmission Date: 20061208
  Serious: Yes (Hospitalization)
  Sender: FDA-Public Use
  Company Number: US-GLAXOSMITHKLINE-A0618712A

PATIENT
  Age: 82 Year
  Sex: Male

DRUGS (2)
  1. NICORETTE [Suspect]
     Indication: SMOKING CESSATION THERAPY
     Dosage: 20GUM PER DAY
     Route: 002
  2. BLOOD PRESSURE MEDICATION [Concomitant]

REACTIONS (6)
  - ASTHENIA [None]
  - BLOOD SODIUM DECREASED [None]
  - FATIGUE [None]
  - INTENTIONAL DRUG MISUSE [None]
  - MALAISE [None]
  - NICOTINE DEPENDENCE [None]
